FAERS Safety Report 7033346-1 (Version None)
Quarter: 2010Q4

REPORT INFORMATION
  Report Type: 
  Country: None (occurrence: None)
  Receive Date: 20101007
  Receipt Date: 20100923
  Transmission Date: 20110411
  Serious: Yes (Hospitalization)
  Sender: FDA-Public Use
  Company Number: FR-CELGENEUS-056-C5013-10080638

PATIENT
  Sex: Male
  Weight: 70.8 kg

DRUGS (3)
  1. CC-5013 [Suspect]
     Indication: MULTIPLE MYELOMA
     Route: 048
     Dates: start: 20090707, end: 20090727
  2. DEXAMETHASONE [Suspect]
     Indication: MULTIPLE MYELOMA
     Route: 065
     Dates: start: 20090707, end: 20090803
  3. KARDEGIC [Concomitant]
     Route: 048
     Dates: start: 20090917

REACTIONS (1)
  - PNEUMONIA LEGIONELLA [None]
